FAERS Safety Report 4877221-7 (Version None)
Quarter: 2005Q4

REPORT INFORMATION
  Report Type: 
  Country: None (occurrence: None)
  Receive Date: 20051206
  Receipt Date: 20050920
  Transmission Date: 20060501
  Serious: No
  Sender: FDA-Public Use
  Company Number: USA0509109009

PATIENT
  Age: 15 Year
  Sex: Female

DRUGS (1)
  1. CYMBALTA [Suspect]
     Indication: BIPOLAR DISORDER
     Dosage: 60 MG
     Dates: start: 20050525

REACTIONS (1)
  - KIDNEY INFECTION [None]
